FAERS Safety Report 12652925 (Version 1)
Quarter: 2016Q3

REPORT INFORMATION
  Report Type: Report from Study
  Country: US (occurrence: US)
  Receive Date: 20160815
  Receipt Date: 20160815
  Transmission Date: 20161109
  Serious: Yes (Other)
  Sender: FDA-Public Use
  Company Number: US-AMGEN-USASL2016100590

PATIENT
  Age: 52 Year
  Sex: Female

DRUGS (3)
  1. METHOTREXATE. [Concomitant]
     Active Substance: METHOTREXATE
     Dosage: UNK
     Dates: start: 2016
  2. REMICADE [Concomitant]
     Active Substance: INFLIXIMAB
     Dosage: UNK
  3. ENBREL [Suspect]
     Active Substance: ETANERCEPT
     Indication: PSORIATIC ARTHROPATHY
     Dosage: UNK UNK, QWK
     Route: 065
     Dates: start: 201606

REACTIONS (7)
  - Spinal operation [Unknown]
  - Spinal fusion surgery [Unknown]
  - Back disorder [Unknown]
  - Injection site erythema [Unknown]
  - Injection site warmth [Unknown]
  - Cough [Unknown]
  - Injection site swelling [Unknown]

NARRATIVE: CASE EVENT DATE: 2016
